FAERS Safety Report 8155207-7 (Version None)
Quarter: 2012Q1

REPORT INFORMATION
  Report Type: 
  Country: None (occurrence: None)
  Receive Date: 20120222
  Receipt Date: 20120213
  Transmission Date: 20120608
  Serious: Yes (Hospitalization)
  Sender: FDA-Public Use
  Company Number: US-BRISTOL-MYERS SQUIBB COMPANY-16397085

PATIENT
  Age: 70 Year
  Sex: Male

DRUGS (3)
  1. BENADRYL [Concomitant]
     Indication: PREMEDICATION
  2. ACETAMINOPHEN [Concomitant]
     Indication: PREMEDICATION
  3. ERBITUX [Suspect]
     Indication: BASAL CELL CARCINOMA
     Dates: start: 20120203

REACTIONS (2)
  - PNEUMONIA ASPIRATION [None]
  - INFUSION RELATED REACTION [None]
